FAERS Safety Report 6139777-6 (Version None)
Quarter: 2009Q2

REPORT INFORMATION
  Report Type: 
  Country: None (occurrence: None)
  Receive Date: 20090401
  Receipt Date: 20090327
  Transmission Date: 20091009
  Serious: Yes (Hospitalization)
  Sender: FDA-Public Use
  Company Number: A0776228A

PATIENT
  Sex: Male
  Weight: 110 kg

DRUGS (1)
  1. SERETIDE [Suspect]
     Dosage: 1PUFF TWICE PER DAY
     Dates: start: 20090224

REACTIONS (3)
  - DRUG INEFFECTIVE [None]
  - RALES [None]
  - VOMITING [None]
